FAERS Safety Report 4666778-7 (Version None)
Quarter: 2005Q2

REPORT INFORMATION
  Report Type: 
  Country: None (occurrence: None)
  Receive Date: 20050519
  Receipt Date: 20041223
  Transmission Date: 20051028
  Serious: Yes (Life-Threatening, Hospitalization, Disabling)
  Sender: FDA-Public Use
  Company Number: IT-SANOFI-SYNTHELABO-F01200404023

PATIENT
  Sex: Female

DRUGS (4)
  1. ELOXATIN [Suspect]
     Indication: COLORECTAL CANCER
     Route: 042
     Dates: start: 20041216, end: 20041216
  2. FLUOROURACIL [Suspect]
     Dosage: 4480 MG (400 MG/M2 BOLUS ON D1 AND 2 AND 2.4-3 G/M2 CONTINUOUS INFUSION FOR 46H ON D1) Q2W
     Route: 042
     Dates: start: 20041216, end: 20041217
  3. LEUCOVORIN CALCIUM [Suspect]
     Dosage: 320 MG (400 MG/M2 ON D1 AND 2) Q2W
     Route: 042
     Dates: start: 20041216, end: 20041217
  4. ANTHRACYCLINES [Concomitant]

REACTIONS (1)
  - PERICARDITIS [None]
